FAERS Safety Report 17039205 (Version 2)
Quarter: 2020Q2

REPORT INFORMATION
  Report Type: Spontaneous
  Country: US (occurrence: US)
  Receive Date: 20191115
  Receipt Date: 20200528
  Transmission Date: 20200713
  Serious: No
  Sender: FDA-Public Use
  Company Number: US-SA-2019SA312097

PATIENT
  Age: 58 Year
  Sex: Female

DRUGS (1)
  1. DUPIXENT [Suspect]
     Active Substance: DUPILUMAB
     Indication: ASTHMA
     Dosage: 300 MG, QOW
     Route: 058
     Dates: start: 20190717

REACTIONS (4)
  - Injection site reaction [Unknown]
  - Dyspnoea [Unknown]
  - Urinary tract infection [Unknown]
  - Injection site erythema [Unknown]

NARRATIVE: CASE EVENT DATE: 20191024
